FAERS Safety Report 23401912 (Version 1)
Quarter: 2024Q1

REPORT INFORMATION
  Report Type: Spontaneous
  Country: JP (occurrence: JP)
  Receive Date: 20240115
  Receipt Date: 20240115
  Transmission Date: 20240410
  Serious: Yes (Other)
  Sender: FDA-Public Use
  Company Number: JP-SA-SAC20240112000692

PATIENT
  Age: 60 Year
  Sex: Male

DRUGS (1)
  1. OXALIPLATIN [Suspect]
     Active Substance: OXALIPLATIN
     Dosage: UNK
     Route: 042

REACTIONS (6)
  - Cardiac failure acute [Unknown]
  - Cardiomyopathy [Unknown]
  - Urinary retention [Unknown]
  - Postrenal failure [Unknown]
  - Splenic infarction [Unknown]
  - Cystitis [Unknown]
